FAERS Safety Report 17366734 (Version 2)
Quarter: 2020Q1

REPORT INFORMATION
  Report Type: Spontaneous
  Country: HU (occurrence: HU)
  Receive Date: 20200204
  Receipt Date: 20200218
  Transmission Date: 20200409
  Serious: Yes (Other)
  Sender: FDA-Public Use
  Company Number: NVSC2020HU027545

PATIENT

DRUGS (3)
  1. FLUOROURACIL. [Suspect]
     Active Substance: FLUOROURACIL
     Indication: ADENOCARCINOMA OF COLON
     Dosage: 4 UNK, CYCLIC
     Route: 065
     Dates: start: 20180927
  2. IRINOTECAN [Suspect]
     Active Substance: IRINOTECAN
     Indication: ADENOCARCINOMA OF COLON
     Dosage: 4 UNK, CYCLIC
     Route: 065
     Dates: start: 20180927
  3. CALCIUM FOLINATE [Suspect]
     Active Substance: LEUCOVORIN CALCIUM
     Indication: ADENOCARCINOMA OF COLON
     Dosage: 4 UNK, CYCLIC
     Route: 065
     Dates: start: 20180927

REACTIONS (7)
  - Metastases to liver [Unknown]
  - Metastases to lymph nodes [Unknown]
  - Hypomagnesaemia [Unknown]
  - Product use in unapproved indication [Unknown]
  - Adenocarcinoma of colon [Unknown]
  - Malignant neoplasm progression [Unknown]
  - Diarrhoea [Unknown]

NARRATIVE: CASE EVENT DATE: 20190108
